FAERS Safety Report 20740713 (Version 4)
Quarter: 2022Q2

REPORT INFORMATION
  Report Type: Report from Study
  Country: MX (occurrence: MX)
  Receive Date: 20220422
  Receipt Date: 20220524
  Transmission Date: 20220721
  Serious: Yes (Other)
  Sender: FDA-Public Use
  Company Number: MX-BAYER-2022A058351

PATIENT
  Age: 73 Year
  Sex: Female

DRUGS (4)
  1. NEXAVAR [Suspect]
     Active Substance: SORAFENIB
     Indication: Renal cell carcinoma
     Dosage: 400 MG, BID
     Route: 048
     Dates: start: 20220316
  2. NEXAVAR [Suspect]
     Active Substance: SORAFENIB
     Indication: Renal cell carcinoma
     Dosage: DAILY DOSE 600 MG (400 MILLIGRAMS BY  IN THE MORNING AND 200 MILLIGRAMS BY AT NIGHT)
     Route: 048
  3. CHLORPHENIRAMINE MALEATE [Concomitant]
     Active Substance: CHLORPHENIRAMINE MALEATE
     Indication: Pruritus
     Dosage: UNK
  4. METFORMIN [Concomitant]
     Active Substance: METFORMIN HYDROCHLORIDE
     Indication: Diabetes mellitus
     Dosage: HALF A PILL BEFORE EATING
     Dates: start: 2011

REACTIONS (15)
  - Skin mass [Recovered/Resolved]
  - Pain in extremity [Recovered/Resolved]
  - Musculoskeletal disorder [Recovered/Resolved]
  - Gait inability [Recovered/Resolved]
  - Diarrhoea [Not Recovered/Not Resolved]
  - Urticaria [Recovered/Resolved]
  - Skin exfoliation [Recovered/Resolved]
  - Acne [Not Recovered/Not Resolved]
  - Skin lesion [Recovered/Resolved]
  - Urticaria [Recovering/Resolving]
  - Palmar-plantar erythrodysaesthesia syndrome [Recovered/Resolved with Sequelae]
  - Swelling face [Recovered/Resolved]
  - Peripheral swelling [Recovered/Resolved]
  - Eye swelling [Recovered/Resolved]
  - Dry skin [Recovered/Resolved]

NARRATIVE: CASE EVENT DATE: 20220323
